FAERS Safety Report 4592965-2 (Version None)
Quarter: 2005Q1

REPORT INFORMATION
  Report Type: 
  Country: None (occurrence: None)
  Receive Date: 20050228
  Receipt Date: 20050223
  Transmission Date: 20050727
  Serious: Yes (Death)
  Sender: FDA-Public Use
  Company Number: PHHO2005JP03286

PATIENT
  Age: 75 Year
  Sex: Male

DRUGS (3)
  1. GLEEVEC [Suspect]
     Indication: GASTROINTESTINAL STROMAL TUMOUR
     Dosage: 300 MG, QD
     Route: 048
     Dates: start: 20031031, end: 20031101
  2. GLEEVEC [Suspect]
     Dosage: 300 MG, QD
     Route: 048
     Dates: start: 20031105, end: 20040105
  3. GLEEVEC [Suspect]
     Dosage: 400 MG, QD
     Route: 048
     Dates: start: 20040106, end: 20041030

REACTIONS (7)
  - ASCITES [None]
  - COMPLETED SUICIDE [None]
  - HEPATIC EMBOLISATION [None]
  - HEPATIC FUNCTION ABNORMAL [None]
  - HEPATIC NEOPLASM MALIGNANT NON-RESECTABLE [None]
  - OEDEMA PERIPHERAL [None]
  - PLEURAL EFFUSION [None]
